FAERS Safety Report 5361453-8 (Version None)
Quarter: 2007Q2

REPORT INFORMATION
  Report Type: 
  Country: None (occurrence: None)
  Receive Date: 20070530
  Receipt Date: 20070102
  Transmission Date: 20071010
  Serious: No
  Sender: FDA-Public Use
  Company Number: 2007PV027702

PATIENT
  Age: 53 Year
  Sex: Male
  Weight: 83.9154 kg

DRUGS (3)
  1. BYETTA [Suspect]
     Indication: DIABETES MELLITUS NON-INSULIN-DEPENDENT
     Dosage: 5 MCG;BID;SC
     Route: 058
     Dates: start: 20061201, end: 20061230
  2. ACTOS [Concomitant]
  3. GLUCOVANCE [Concomitant]

REACTIONS (6)
  - ERECTILE DYSFUNCTION [None]
  - HEADACHE [None]
  - NAUSEA [None]
  - PERIPHERAL COLDNESS [None]
  - STOMACH DISCOMFORT [None]
  - WEIGHT DECREASED [None]
